FAERS Safety Report 9127471 (Version 1)
Quarter: 2013Q1

REPORT INFORMATION
  Report Type: Spontaneous
  Country: FR (occurrence: FR)
  Receive Date: 20130228
  Receipt Date: 20130228
  Transmission Date: 20140127
  Serious: Yes (Congenital Anomaly)
  Sender: FDA-Public Use
  Company Number: FR-ASTRAZENECA-2013SE12506

PATIENT
  Age: 0 Week
  Sex: 0

DRUGS (1)
  1. ZOMIG [Suspect]
     Route: 064
     Dates: start: 20121021, end: 20121021

REACTIONS (1)
  - Ultrasound antenatal screen [Not Recovered/Not Resolved]
